FAERS Safety Report 18655274 (Version 4)
Quarter: 2021Q1

REPORT INFORMATION
  Report Type: Spontaneous
  Country: JP (occurrence: JP)
  Receive Date: 20201223
  Receipt Date: 20210203
  Transmission Date: 20210419
  Serious: Yes (Other)
  Sender: FDA-Public Use
  Company Number: JP-ALVOGEN-2020-ALVOGEN-115602

PATIENT
  Age: 71 Year
  Sex: Female

DRUGS (4)
  1. LIXIANA [Suspect]
     Active Substance: EDOXABAN TOSYLATE
     Indication: TACHYCARDIA
     Route: 048
     Dates: start: 20200720, end: 2020
  2. SUNRYTHM [Suspect]
     Active Substance: PILSICAINIDE HYDROCHLORIDE
     Indication: TACHYCARDIA
     Route: 048
     Dates: start: 20200720, end: 2020
  3. AZOSEMIDE [Suspect]
     Active Substance: AZOSEMIDE
     Indication: OEDEMA
     Route: 048
     Dates: start: 20201207
  4. TENORMIN [Suspect]
     Active Substance: ATENOLOL
     Indication: TACHYCARDIA
     Route: 048
     Dates: start: 20200720, end: 20200918

REACTIONS (5)
  - Dysarthria [Not Recovered/Not Resolved]
  - Oedema [Not Recovered/Not Resolved]
  - Autoimmune thyroiditis [Not Recovered/Not Resolved]
  - Tongue oedema [Recovering/Resolving]
  - Hypothyroidism [Not Recovered/Not Resolved]

NARRATIVE: CASE EVENT DATE: 20201003
